FAERS Safety Report 11990671 (Version 1)
Quarter: 2016Q1

REPORT INFORMATION
  Report Type: Spontaneous
  Country: US (occurrence: US)
  Receive Date: 20160202
  Receipt Date: 20160202
  Transmission Date: 20160526
  Serious: No
  Sender: FDA-Public Use
  Company Number: US-GALDERMA-US15008775

PATIENT
  Age: 16 Year
  Sex: Male

DRUGS (3)
  1. EPIDUO [Suspect]
     Active Substance: ADAPALENE\BENZOYL PEROXIDE
     Indication: ACNE
     Route: 061
     Dates: start: 2013, end: 201511
  2. CETAPHIL DAILY FACIAL CLEANSER [Concomitant]
     Active Substance: COSMETICS
     Indication: THERAPEUTIC SKIN CARE TOPICAL
     Route: 061
  3. AVEENO DAILY MOISTURIZING [Concomitant]
     Active Substance: DIMETHICONE
     Route: 061

REACTIONS (1)
  - Dry skin [Unknown]
